FAERS Safety Report 5746475-7 (Version None)
Quarter: 2008Q2

REPORT INFORMATION
  Report Type: 
  Country: None (occurrence: None)
  Receive Date: 20080522
  Receipt Date: 20080515
  Transmission Date: 20081010
  Serious: Yes (Hospitalization)
  Sender: FDA-Public Use
  Company Number: B0521437A

PATIENT
  Age: 65 Year
  Sex: Male
  Weight: 80 kg

DRUGS (4)
  1. WELLBUTRIN [Suspect]
     Dosage: 150MG PER DAY
     Route: 048
     Dates: start: 20080120, end: 20080221
  2. ESCITALOPRAM [Concomitant]
     Dosage: 30MG PER DAY
     Route: 048
  3. ACTOS [Concomitant]
     Dosage: 30MG PER DAY
     Route: 065
  4. JANUVIA [Concomitant]
     Indication: DIABETES MELLITUS
     Dosage: 100MG PER DAY
     Route: 048

REACTIONS (6)
  - AGGRESSION [None]
  - AGITATION [None]
  - ANXIETY [None]
  - DEPRESSION [None]
  - DISINHIBITION [None]
  - EUPHORIC MOOD [None]
